FAERS Safety Report 23164868 (Version 1)
Quarter: 2023Q4

REPORT INFORMATION
  Report Type: Spontaneous
  Country: US (occurrence: None)
  Receive Date: 20231108
  Receipt Date: 20231108
  Transmission Date: 20240110
  Serious: Yes (Disabling, Other)
  Sender: FDA-Public Use
  Company Number: None

PATIENT
  Age: 31 Year
  Sex: Female
  Weight: 78.75 kg

DRUGS (2)
  1. SALINE [Suspect]
     Active Substance: SODIUM CHLORIDE
     Indication: Infection prophylaxis
     Dosage: OTHER QUANTITY : 1 SPRAY(S);?FREQUENCY : TWICE A DAY;?
     Route: 061
     Dates: start: 20230410, end: 20230801
  2. VITAMINS [Concomitant]
     Active Substance: VITAMINS

REACTIONS (3)
  - Surgical skin tear [None]
  - Scar [None]
  - Application site reaction [None]

NARRATIVE: CASE EVENT DATE: 20230904
